FAERS Safety Report 9263540 (Version 1)
Quarter: 2013Q2

REPORT INFORMATION
  Report Type: Spontaneous
  Country: US (occurrence: None)
  Receive Date: 20130429
  Receipt Date: 20130429
  Transmission Date: 20140414
  Serious: No
  Sender: FDA-Public Use
  Company Number: None

PATIENT
  Sex: Female
  Weight: 60.33 kg

DRUGS (1)
  1. ORTHOTRICYCLEN [Suspect]

REACTIONS (5)
  - Abdominal distension [None]
  - Weight increased [None]
  - Irritability [None]
  - Metrorrhagia [None]
  - Muscle spasms [None]
